FAERS Safety Report 12666610 (Version 3)
Quarter: 2016Q3

REPORT INFORMATION
  Report Type: Spontaneous
  Country: US (occurrence: US)
  Receive Date: 20160819
  Receipt Date: 20160826
  Transmission Date: 20161109
  Serious: No
  Sender: FDA-Public Use
  Company Number: US-HORIZON-RAV-0159-2016

PATIENT
  Age: 8 Year
  Sex: Female

DRUGS (4)
  1. CYCLINEX 2 [Concomitant]
  2. RAVICTI [Suspect]
     Active Substance: GLYCEROL PHENYLBUTYRATE
     Indication: ORNITHINE TRANSCARBAMOYLASE DEFICIENCY
     Dosage: 3 ML TID
     Dates: start: 20141118
  3. PROTEIN [Concomitant]
     Active Substance: PROTEIN
     Dosage: 13 G
  4. PRO-PHREE [Concomitant]

REACTIONS (1)
  - Trichorrhexis [Unknown]

NARRATIVE: CASE EVENT DATE: 2016
